FAERS Safety Report 8102226-2 (Version None)
Quarter: 2012Q1

REPORT INFORMATION
  Report Type: 
  Country: None (occurrence: None)
  Receive Date: 20120201
  Receipt Date: 20120125
  Transmission Date: 20120608
  Serious: Yes (Other)
  Sender: FDA-Public Use
  Company Number: US-SP-2012-00955

PATIENT
  Sex: Male

DRUGS (4)
  1. ^CLONIPAN^ [Concomitant]
  2. TUBERCULIN NOS [Suspect]
     Indication: TUBERCULIN TEST
     Route: 065
     Dates: start: 19650101, end: 19650101
  3. LISINOPRIL [Concomitant]
  4. AMBIEN [Concomitant]

REACTIONS (10)
  - APPLICATION SITE SWELLING [None]
  - TYPE 2 DIABETES MELLITUS [None]
  - DEPRESSION [None]
  - TREMOR [None]
  - DRUG HYPERSENSITIVITY [None]
  - HYPOAESTHESIA [None]
  - PRURITUS GENERALISED [None]
  - LIMB DISCOMFORT [None]
  - STENT PLACEMENT [None]
  - APPLICATION SITE SCAR [None]
